FAERS Safety Report 7021128-6 (Version None)
Quarter: 2010Q3

REPORT INFORMATION
  Report Type: 
  Country: None (occurrence: None)
  Receive Date: 20100929
  Receipt Date: 20100915
  Transmission Date: 20110219
  Serious: Yes (Other)
  Sender: FDA-Public Use
  Company Number: PR-MYLANLABS-2010S1014361

PATIENT
  Age: 21 Year
  Sex: Female
  Weight: 58.97 kg

DRUGS (2)
  1. CLARAVIS [Suspect]
     Indication: ACNE CYSTIC
     Route: 048
     Dates: start: 20100520
  2. AMNESTEEM [Suspect]
     Indication: ACNE CYSTIC
     Route: 048
     Dates: end: 20100706

REACTIONS (2)
  - DRUG INTOLERANCE [None]
  - HEPATIC ENZYME INCREASED [None]
